FAERS Safety Report 6151453-2 (Version None)
Quarter: 2009Q2

REPORT INFORMATION
  Report Type: 
  Country: None (occurrence: None)
  Receive Date: 20090410
  Receipt Date: 20090402
  Transmission Date: 20091009
  Serious: Yes (Other)
  Sender: FDA-Public Use
  Company Number: US-BIOGENIDEC-2009BI010384

PATIENT
  Age: 60 Year
  Sex: Female

DRUGS (1)
  1. AVONEX [Suspect]
     Indication: MULTIPLE SCLEROSIS
     Route: 030
     Dates: start: 20060828

REACTIONS (4)
  - HEART VALVE STENOSIS [None]
  - HEPATIC ENZYME ABNORMAL [None]
  - HYPERTROPHIC CARDIOMYOPATHY [None]
  - SERUM FERRITIN INCREASED [None]
